FAERS Safety Report 5495908-2 (Version None)
Quarter: 2007Q4

REPORT INFORMATION
  Report Type: 
  Country: None (occurrence: None)
  Receive Date: 20071025
  Receipt Date: 20061211
  Transmission Date: 20080405
  Serious: No
  Sender: FDA-Public Use
  Company Number: A0627274A

PATIENT
  Age: 78 Year
  Sex: Female
  Weight: 59.1 kg

DRUGS (2)
  1. ADVAIR DISKUS 100/50 [Suspect]
     Indication: ASTHMA
     Dosage: 1PUFF TWICE PER DAY
     Route: 055
     Dates: start: 20060801
  2. ALBUTEROL [Concomitant]

REACTIONS (4)
  - CANDIDIASIS [None]
  - DYSPHAGIA [None]
  - EATING DISORDER [None]
  - PHARYNGOLARYNGEAL PAIN [None]
